FAERS Safety Report 9231334 (Version 17)
Quarter: 2015Q2

REPORT INFORMATION
  Report Type: Report from Study
  Country: JP (occurrence: JP)
  Receive Date: 20130415
  Receipt Date: 20150401
  Transmission Date: 20150821
  Serious: Yes (Hospitalization)
  Sender: FDA-Public Use
  Company Number: JP-UCBSA-082464

PATIENT
  Age: 59 Year
  Sex: Female
  Weight: 65 kg

DRUGS (13)
  1. PREGABALIN. [Concomitant]
     Active Substance: PREGABALIN
     Indication: LUMBAR SPINAL STENOSIS
     Dosage: 25 MG, 2X/DAY (BID)
     Route: 048
     Dates: start: 20120803
  2. TERIPARATIDE (GENETIC RECOMBINATION) [Concomitant]
     Indication: OSTEOPOROSIS
     Dosage: 20 ?G, ONCE DAILY (QD)
     Route: 058
     Dates: start: 20121029
  3. DICLOFENAC SODIUM. [Concomitant]
     Active Substance: DICLOFENAC SODIUM
     Indication: RHEUMATOID ARTHRITIS
     Dosage: 37.5 MG, 2X/DAY (BID)
     Route: 048
     Dates: start: 20101218
  4. FOLIC ACID. [Concomitant]
     Active Substance: FOLIC ACID
     Indication: RHEUMATOID ARTHRITIS
     Dosage: 5 MG, WEEKLY (QW)
     Route: 048
     Dates: start: 20081003
  5. BENIDIPINE HYDROCHLORIDE [Concomitant]
     Active Substance: BENIDIPINE HYDROCHLORIDE
     Indication: HYPERTENSION
     Dosage: 4 MG, ONCE DAILY (QD)
     Route: 048
     Dates: start: 20120329
  6. ALFACALCIDOL [Concomitant]
     Active Substance: ALFACALCIDOL
     Indication: OSTEOPOROSIS
     Dosage: 1 ?G, ONCE DAILY (QD)
     Route: 048
     Dates: start: 20120506
  7. METHOTREXATE [Concomitant]
     Active Substance: METHOTREXATE
     Indication: RHEUMATOID ARTHRITIS
     Dosage: 4 MG, 2X/WEEK
     Route: 048
     Dates: start: 20080905, end: 20130930
  8. METHOTREXATE [Concomitant]
     Active Substance: METHOTREXATE
     Dosage: 12 MG, WEEKLY (QW)
     Route: 048
     Dates: start: 20130930
  9. BETAMETHASONE [Concomitant]
     Active Substance: BETAMETHASONE
     Indication: RHEUMATOID ARTHRITIS
     Dosage: .5 MG, ONCE DAILY (QD)
     Route: 048
     Dates: start: 20081219
  10. SULFAMETHOXAZOLE-TRIMETHOPRIM (SMZ) [Concomitant]
     Active Substance: SULFAMETHOXAZOLE\TRIMETHOPRIM
     Indication: ANTIFUNGAL PROPHYLAXIS
     Dosage: 2 DF, 4X/WEEK
     Route: 048
     Dates: start: 20120509
  11. CERTOLIZUMAB PEGOL RA [Suspect]
     Active Substance: CERTOLIZUMAB PEGOL
     Indication: RHEUMATOID ARTHRITIS
     Dosage: 400 MG, EV 4 WEEKS
     Route: 058
     Dates: start: 20091218, end: 20130208
  12. ROSUVASTATIN CALCIUM. [Concomitant]
     Active Substance: ROSUVASTATIN CALCIUM
     Indication: HYPERCHOLESTEROLAEMIA
     Dosage: 20 MG, ONCE DAILY (QD)
     Route: 048
     Dates: start: 20120329
  13. AROTINOLOL HYDROCHLORIDE [Concomitant]
     Active Substance: AROTINOLOL HYDROCHLORIDE
     Indication: HYPERTENSION
     Dosage: 5 MG, ONCE DAILY (QD)
     Route: 048
     Dates: start: 20120922

REACTIONS (3)
  - Arthritis [Recovering/Resolving]
  - Abscess limb [Recovering/Resolving]
  - Ankle fracture [Not Recovered/Not Resolved]

NARRATIVE: CASE EVENT DATE: 20130404
